FAERS Safety Report 8993586 (Version 3)
Quarter: 2014Q1

REPORT INFORMATION
  Report Type: Report from Study
  Country: US (occurrence: US)
  Receive Date: 20130102
  Receipt Date: 20140114
  Transmission Date: 20141002
  Serious: Yes (Hospitalization)
  Sender: FDA-Public Use
  Company Number: US-ACTELION-A-US2012-76364

PATIENT
  Age: 64 Year
  Sex: Female

DRUGS (1)
  1. TRACLEER [Suspect]
     Indication: PULMONARY ARTERIAL HYPERTENSION
     Dosage: UNK
     Route: 048
     Dates: start: 20120315

REACTIONS (8)
  - Liver disorder [Unknown]
  - Confusional state [Unknown]
  - Ammonia increased [Unknown]
  - Dyspnoea [Unknown]
  - Urinary tract infection [Unknown]
  - Dehydration [Unknown]
  - Staphylococcal infection [Unknown]
  - Rash [Unknown]
